FAERS Safety Report 8267687-7 (Version None)
Quarter: 2012Q2

REPORT INFORMATION
  Report Type: 
  Country: None (occurrence: None)
  Receive Date: 20120404
  Receipt Date: 20120322
  Transmission Date: 20120825
  Serious: Yes (Other)
  Sender: FDA-Public Use
  Company Number: 1238199

PATIENT
  Age: 71 Year
  Sex: Female

DRUGS (2)
  1. PACLITAXEL [Suspect]
     Indication: ENDOMETRIAL CANCER
     Dosage: 291 MG MILLIGRAM(S), INTRAVENOUS (NOT OTHERWISE SPECIFIED)
     Route: 042
     Dates: start: 20120214, end: 20120214
  2. CARBOPLATIN [Concomitant]

REACTIONS (3)
  - CHEST PAIN [None]
  - DYSPNOEA [None]
  - CYANOSIS [None]
